FAERS Safety Report 9009378 (Version 2)
Quarter: 2013Q1

REPORT INFORMATION
  Report Type: Spontaneous
  Country: BR (occurrence: BR)
  Receive Date: 20130111
  Receipt Date: 20130115
  Transmission Date: 20140127
  Serious: Yes (Other)
  Sender: FDA-Public Use
  Company Number: PHHY2013BR002104

PATIENT
  Sex: Male
  Weight: 60 kg

DRUGS (13)
  1. FORASEQ [Suspect]
     Indication: ASTHMA
     Dosage: 12/400 MCG 1 CAPSULE OF EACH TREATMENT DAILY
     Route: 048
  2. BAMIFIX [Concomitant]
     Dosage: 300 MG, BID
     Route: 048
  3. PREDSIM [Concomitant]
     Dosage: 2 TABLET (20 MG) DAILY
     Route: 048
     Dates: start: 20130104
  4. PREDSIM [Concomitant]
     Dosage: 20 MG, DAILY
     Route: 048
  5. APROZIDE [Concomitant]
     Indication: HYPERTENSION
     Dosage: 1 DF, (300/12,5MG) DAILY
     Route: 048
  6. APROZIDE [Concomitant]
     Indication: CORONARY ARTERY INSUFFICIENCY
  7. VASOPRIL [Concomitant]
     Indication: HYPERTENSION
     Dosage: 2 TABLETA AT LUNCH AND ONE TABLET AT DINNER
     Route: 048
  8. METILDOPA [Concomitant]
     Dosage: 2 TABLET AT LUNCH AND ONE TABLET AT DINNER
     Route: 048
  9. APRESOLINA [Concomitant]
     Dosage: 2 TABLETS AT LUNCH AND 1 TABLET AT DINNER
     Route: 048
  10. CLINFAR [Concomitant]
     Indication: BLOOD CHOLESTEROL INCREASED
     Dosage: 20 MG, BID
     Route: 048
  11. ASPIRINA [Concomitant]
     Dosage: 1 DF, UNK
     Route: 048
     Dates: start: 2001
  12. ATENSINA [Concomitant]
     Indication: BLOOD PRESSURE
     Dosage: 0.100 MG, BID
     Route: 048
     Dates: start: 20130105
  13. ATROVENT [Concomitant]
     Dosage: 20 DRP, DAILY

REACTIONS (3)
  - Atelectasis [Recovering/Resolving]
  - Dyspnoea [Recovering/Resolving]
  - Blood pressure abnormal [Recovering/Resolving]
